FAERS Safety Report 8524954-7 (Version None)
Quarter: 2012Q3

REPORT INFORMATION
  Report Type: 
  Country: None (occurrence: None)
  Receive Date: 20120720
  Receipt Date: 20120711
  Transmission Date: 20120928
  Serious: Yes (Other)
  Sender: FDA-Public Use
  Company Number: US-JNJFOC-20120706677

PATIENT
  Sex: Female

DRUGS (1)
  1. BENADRYL [Suspect]
     Indication: PRODUCT USED FOR UNKNOWN INDICATION
     Route: 048
     Dates: start: 19720101

REACTIONS (4)
  - APHASIA [None]
  - HYPOKINESIA [None]
  - DYSPNOEA [None]
  - MATERNAL EXPOSURE DURING PREGNANCY [None]
